FAERS Safety Report 5258976-9 (Version None)
Quarter: 2007Q1

REPORT INFORMATION
  Report Type: 
  Country: None (occurrence: None)
  Receive Date: 20070308
  Receipt Date: 20070228
  Transmission Date: 20070707
  Serious: Yes (Other)
  Sender: FDA-Public Use
  Company Number: JP-ROCHE-484580

PATIENT
  Age: 12 Year
  Sex: Female
  Weight: 37 kg

DRUGS (3)
  1. TAMIFLU [Suspect]
     Route: 048
     Dates: start: 20070219, end: 20070220
  2. PEMILASTON [Concomitant]
     Route: 048
     Dates: start: 20070219, end: 20070225
  3. ZESULAN [Concomitant]
     Route: 048
     Dates: start: 20070219, end: 20070225

REACTIONS (1)
  - DIPLOPIA [None]
